FAERS Safety Report 4465533-0 (Version None)
Quarter: 2004Q4

REPORT INFORMATION
  Report Type: 
  Country: None (occurrence: None)
  Receive Date: 20041004
  Receipt Date: 20040329
  Transmission Date: 20050328
  Serious: No
  Sender: FDA-Public Use
  Company Number: US-GLAXOSMITHKLINE-A0505078A

PATIENT
  Sex: Female

DRUGS (2)
  1. IMITREX [Suspect]
     Indication: MIGRAINE
     Dosage: 20MG AS REQUIRED
     Route: 045
  2. DEMEROL [Suspect]
     Indication: MIGRAINE
     Route: 065

REACTIONS (2)
  - DRUG INEFFECTIVE [None]
  - NASAL SINUS DRAINAGE [None]
